FAERS Safety Report 13331409 (Version 1)
Quarter: 2017Q1

REPORT INFORMATION
  Report Type: Spontaneous
  Country: US (occurrence: US)
  Receive Date: 20170313
  Receipt Date: 20170313
  Transmission Date: 20170428
  Serious: Yes (Hospitalization)
  Sender: FDA-Public Use
  Company Number: None

PATIENT
  Age: 60 Year
  Sex: Female
  Weight: 101.2 kg

DRUGS (5)
  1. CALCIUM W/D3 [Concomitant]
  2. CENTRUM SILVER MULTIVITAMIN [Concomitant]
  3. PRAVASTATIN. [Concomitant]
     Active Substance: PRAVASTATIN
  4. MEDROXYPROGESTERONE 10 MG TAB [Suspect]
     Active Substance: MEDROXYPROGESTERONE
     Indication: ENDOMETRIAL HYPERPLASIA
     Dosage: ?          QUANTITY:1 TABLET(S);?
     Route: 048
     Dates: start: 20170103, end: 20170216
  5. XARELTO [Concomitant]
     Active Substance: RIVAROXABAN

REACTIONS (3)
  - Pain in extremity [None]
  - Deep vein thrombosis [None]
  - Pulmonary embolism [None]

NARRATIVE: CASE EVENT DATE: 20170219
